APPROVED DRUG PRODUCT: ARISTADA
Active Ingredient: ARIPIPRAZOLE LAUROXIL
Strength: 1064MG/3.9ML (272.82MG/ML)
Dosage Form/Route: SUSPENSION, EXTENDED RELEASE;INTRAMUSCULAR
Application: N207533 | Product #004
Applicant: ALKERMES INC
Approved: Jun 5, 2017 | RLD: Yes | RS: No | Type: RX

PATENTS:
Patent 8796276 | Expires: Jun 24, 2030
Patent 9193685 | Expires: Oct 24, 2033
Patent 10238651 | Expires: Mar 19, 2035
Patent 10226458 | Expires: Mar 19, 2032
Patent 10112903 | Expires: Jun 24, 2030
Patent 9452131 | Expires: Mar 19, 2035
Patent 11097006 | Expires: Oct 24, 2033
Patent 12311027 | Expires: Sep 19, 2033
Patent 12251381 | Expires: Apr 6, 2039
Patent 10813928 | Expires: Mar 19, 2035
Patent 11406632 | Expires: Mar 19, 2035
Patent 11273158 | Expires: Apr 6, 2039
Patent 9034867 | Expires: Nov 7, 2032
Patent 11969469 | Expires: Oct 24, 2033
Patent 8431576 | Expires: Oct 26, 2030